FAERS Safety Report 9368932 (Version 3)
Quarter: 2013Q3

REPORT INFORMATION
  Report Type: Report from Study
  Country: DE (occurrence: DE)
  Receive Date: 20130626
  Receipt Date: 20130928
  Transmission Date: 20140515
  Serious: Yes (Hospitalization)
  Sender: FDA-Public Use
  Company Number: DE-ROCHE-1241517

PATIENT
  Age: 65 Year
  Sex: Female
  Weight: 79 kg

DRUGS (15)
  1. CAPECITABINE [Suspect]
     Indication: COLORECTAL CANCER
     Dosage: DATE OF LAST DOSE PRIOR TO SAE 21/JUN/2013
     Route: 048
     Dates: start: 20120103, end: 20130622
  2. BEVACIZUMAB [Suspect]
     Indication: COLORECTAL CANCER
     Dosage: DATE OF LAST DOSE PRIOR TO SAE 07/JUN/2013
     Route: 042
     Dates: start: 20120103, end: 20130622
  3. IRINOTECAN [Suspect]
     Indication: COLORECTAL CANCER
     Dosage: LAST DOSE PRIOR TO SAE 07/JUN/2013
     Route: 042
     Dates: start: 20120313, end: 20130622
  4. LANTUS [Concomitant]
     Dosage: TOTAL DAILY DOSE: 0010 IE
     Route: 065
     Dates: start: 2005
  5. VALORON (GERMANY) [Concomitant]
     Route: 065
     Dates: start: 20130622
  6. SIMVASTATIN [Concomitant]
     Route: 065
     Dates: start: 201103
  7. BISOPROLOL [Concomitant]
     Dosage: DOSE: 7.5, 18.75 MG
     Route: 065
     Dates: start: 2008
  8. ACTRAPID INSULIN [Concomitant]
     Dosage: DOSE: 0036 IE
     Route: 065
     Dates: start: 2005
  9. NOVALGIN [Concomitant]
     Route: 065
     Dates: start: 20130622
  10. CIPRALEX [Concomitant]
     Route: 065
     Dates: start: 20130621
  11. PALLADON [Concomitant]
     Route: 065
     Dates: start: 20130624, end: 20130626
  12. METFORMIN HYDROCHLORIDE [Concomitant]
     Route: 065
     Dates: start: 1995
  13. ASS [Concomitant]
     Route: 065
     Dates: start: 2008
  14. LYRICA [Concomitant]
     Route: 065
     Dates: start: 20130622
  15. CLEXANE [Concomitant]
     Route: 065
     Dates: start: 20130621

REACTIONS (1)
  - Renal failure [Recovered/Resolved with Sequelae]
